FAERS Safety Report 4701979-0 (Version None)
Quarter: 2005Q2

REPORT INFORMATION
  Report Type: 
  Country: None (occurrence: None)
  Receive Date: 20050628
  Receipt Date: 20050309
  Transmission Date: 20051028
  Serious: Yes (Death, Hospitalization)
  Sender: FDA-Public Use
  Company Number: US-MERCK-0503USA01688

PATIENT
  Age: 80 Year
  Sex: Male
  Weight: 68 kg

DRUGS (12)
  1. VIOXX [Suspect]
     Indication: OSTEOARTHRITIS
     Route: 048
     Dates: start: 19990101, end: 20020315
  2. ULTRAM [Concomitant]
     Route: 065
     Dates: start: 20010831
  3. ALLEGRA [Concomitant]
     Indication: HYPERSENSITIVITY
     Route: 065
  4. CHLORDIAZEPOXIDE [Concomitant]
     Indication: ANXIETY
     Route: 065
  5. PERPHENAZINE [Concomitant]
     Indication: EMOTIONAL DISORDER
     Route: 065
  6. PREVACID [Concomitant]
     Route: 065
  7. RESTORIL [Concomitant]
     Indication: INSOMNIA
     Route: 065
  8. SUCRALFATE [Concomitant]
     Indication: GASTROOESOPHAGEAL REFLUX DISEASE
     Route: 065
     Dates: start: 20000127
  9. TEMAZEPAM [Concomitant]
     Indication: INSOMNIA
     Route: 065
  10. PHENERGAN [Concomitant]
     Indication: HYPERSENSITIVITY
     Route: 065
  11. ZITHROMAX [Concomitant]
     Route: 065
  12. CELEBREX [Concomitant]
     Indication: ARTHRITIS
     Route: 065
     Dates: start: 20001204, end: 20020121

REACTIONS (14)
  - CEREBROVASCULAR ACCIDENT [None]
  - CORONARY ARTERY ATHEROSCLEROSIS [None]
  - EMOTIONAL DISORDER [None]
  - GASTROOESOPHAGEAL REFLUX DISEASE [None]
  - HEART DISEASE CONGENITAL [None]
  - HYPERSENSITIVITY [None]
  - HYPERTENSION [None]
  - INSOMNIA [None]
  - IRON DEFICIENCY [None]
  - OEDEMA [None]
  - ORAL INTAKE REDUCED [None]
  - PEPTIC ULCER [None]
  - RESPIRATORY FAILURE [None]
  - TRANSIENT ISCHAEMIC ATTACK [None]
